FAERS Safety Report 8391754-0 (Version None)
Quarter: 2012Q2

REPORT INFORMATION
  Report Type: 
  Country: None (occurrence: None)
  Receive Date: 20120529
  Receipt Date: 20120517
  Transmission Date: 20120825
  Serious: Yes (Other)
  Sender: FDA-Public Use
  Company Number: US-ASTRAZENECA-2010SE37436

PATIENT
  Age: 716 Month
  Sex: Female

DRUGS (16)
  1. SEROQUEL [Suspect]
     Route: 048
  2. SEROQUEL [Suspect]
     Route: 048
  3. SEROQUEL [Suspect]
     Indication: DEPRESSION
     Route: 048
     Dates: end: 20100701
  4. SEROQUEL [Suspect]
     Indication: ANXIETY
     Route: 048
     Dates: end: 20100701
  5. SEROQUEL [Suspect]
     Route: 048
     Dates: start: 20100809
  6. SEROQUEL [Suspect]
     Route: 048
  7. SEROQUEL [Suspect]
     Route: 048
     Dates: start: 20100809
  8. SEROQUEL [Suspect]
     Route: 048
  9. SEROQUEL [Suspect]
     Route: 048
  10. SEROQUEL [Suspect]
     Route: 048
  11. SEROQUEL [Suspect]
     Route: 048
     Dates: start: 20100809
  12. SEROQUEL [Suspect]
     Indication: OBSESSIVE-COMPULSIVE DISORDER
     Route: 048
     Dates: end: 20100701
  13. SEROQUEL [Suspect]
     Route: 048
     Dates: start: 20100809
  14. SEROQUEL [Suspect]
     Route: 048
  15. SEROQUEL [Suspect]
     Indication: BIPOLAR DISORDER
     Route: 048
     Dates: end: 20100701
  16. SEROQUEL [Suspect]
     Route: 048

REACTIONS (15)
  - SUICIDAL IDEATION [None]
  - TACHYPHRENIA [None]
  - ANXIETY [None]
  - INTENTIONAL SELF-INJURY [None]
  - RESTLESS LEGS SYNDROME [None]
  - INSOMNIA [None]
  - ABNORMAL BEHAVIOUR [None]
  - NIGHTMARE [None]
  - MIDDLE INSOMNIA [None]
  - CHEST PAIN [None]
  - TRICHOTILLOMANIA [None]
  - RESTLESSNESS [None]
  - DEPRESSION [None]
  - INTENTIONAL DRUG MISUSE [None]
  - CRYING [None]
